FAERS Safety Report 21598573 (Version 3)
Quarter: 2023Q1

REPORT INFORMATION
  Report Type: Report from Study
  Country: US (occurrence: US)
  Receive Date: 20221115
  Receipt Date: 20230224
  Transmission Date: 20230418
  Serious: Yes (Other)
  Sender: FDA-Public Use
  Company Number: US-ABBVIE-4200801

PATIENT
  Sex: Female

DRUGS (2)
  1. IMBRUVICA [Suspect]
     Active Substance: IBRUTINIB
     Indication: Chronic lymphocytic leukaemia
     Route: 048
     Dates: start: 20210805
  2. IMBRUVICA [Suspect]
     Active Substance: IBRUTINIB
     Indication: Chronic lymphocytic leukaemia
     Route: 048
     Dates: start: 20221111

REACTIONS (8)
  - Demyelination [Unknown]
  - Peripheral coldness [Unknown]
  - Hunger [Unknown]
  - Confusional state [Unknown]
  - Migraine [Unknown]
  - Poor quality sleep [Unknown]
  - Hypoaesthesia [Unknown]
  - Oropharyngeal pain [Unknown]
